FAERS Safety Report 7733835-8 (Version None)
Quarter: 2011Q3

REPORT INFORMATION
  Report Type: 
  Country: None (occurrence: None)
  Receive Date: 20110907
  Receipt Date: 20110830
  Transmission Date: 20111222
  Serious: Yes (Hospitalization)
  Sender: FDA-Public Use
  Company Number: US-JNJFOC-20110307576

PATIENT
  Sex: Male
  Weight: 58.11 kg

DRUGS (6)
  1. REMICADE [Suspect]
     Route: 042
     Dates: start: 20090128, end: 20090128
  2. REMICADE [Suspect]
     Route: 042
     Dates: start: 20070629
  3. MERCAPTOPURINE [Concomitant]
  4. CORTICOSTEROIDS [Concomitant]
     Indication: PREMEDICATION
  5. REMICADE [Suspect]
     Indication: CROHN'S DISEASE
     Route: 042
     Dates: start: 20080902
  6. PROBIOTICS [Concomitant]

REACTIONS (2)
  - CROHN'S DISEASE [None]
  - CLOSTRIDIAL INFECTION [None]
